FAERS Safety Report 12701095 (Version 1)
Quarter: 2016Q3

REPORT INFORMATION
  Report Type: Spontaneous
  Country: US (occurrence: None)
  Receive Date: 20160830
  Receipt Date: 20160830
  Transmission Date: 20161109
  Serious: Yes (Other)
  Sender: FDA-Public Use
  Company Number: None

PATIENT
  Age: 69 Year
  Sex: Male
  Weight: 52.16 kg

DRUGS (12)
  1. LISINOPRIL. [Concomitant]
     Active Substance: LISINOPRIL
  2. ACYCLOVIR. [Concomitant]
     Active Substance: ACYCLOVIR
  3. OMEPRAZOLE. [Concomitant]
     Active Substance: OMEPRAZOLE
  4. MULTI-VITAMIN [Concomitant]
     Active Substance: .ALPHA.-TOCOPHEROL ACETATE, DL-\ASCORBIC ACID\CYANOCOBALAMIN\FLUORIDE ION\FOLIC ACID\NIACIN\PYRIDOXINE\RIBOFLAVIN\THIAMINE\VITAMIN A\VITAMIN D
  5. B-COMPLEX VITAMIN [Concomitant]
  6. CEFEPIME [Suspect]
     Active Substance: CEFEPIME HYDROCHLORIDE
     Indication: INFECTION
     Dosage: INTO VEIN
     Dates: start: 20160727, end: 20160801
  7. FIURINOL [Concomitant]
  8. VELCADE [Concomitant]
     Active Substance: BORTEZOMIB
  9. DEXAMETHASONE. [Concomitant]
     Active Substance: DEXAMETHASONE
  10. RITUXAN [Concomitant]
     Active Substance: RITUXIMAB
  11. CALCIUM [Concomitant]
     Active Substance: CALCIUM
  12. PROBIOTIC [Concomitant]
     Active Substance: PROBIOTICS NOS

REACTIONS (3)
  - Aphasia [None]
  - Activities of daily living impaired [None]
  - Dyskinesia [None]

NARRATIVE: CASE EVENT DATE: 20160730
